FAERS Safety Report 9148843 (Version 5)
Quarter: 2013Q3

REPORT INFORMATION
  Report Type: Spontaneous
  Country: JP (occurrence: JP)
  Receive Date: 20130308
  Receipt Date: 20130702
  Transmission Date: 20140515
  Serious: Yes (Other)
  Sender: FDA-Public Use
  Company Number: JP-JNJFOC-20130301746

PATIENT
  Age: 87 Year
  Sex: Female

DRUGS (12)
  1. TRAMCET [Suspect]
     Indication: PAIN
     Route: 048
     Dates: start: 20130121, end: 20130126
  2. PERAPRIN [Suspect]
     Indication: PROPHYLAXIS OF NAUSEA AND VOMITING
     Route: 048
     Dates: start: 20130121, end: 20130126
  3. PREDONINE [Concomitant]
     Indication: PLEURISY
     Route: 048
  4. PREDONINE [Concomitant]
     Indication: ARTHRITIS
     Route: 048
  5. BLOPRESS [Concomitant]
     Indication: HYPERTENSION
     Route: 048
  6. AMLODIN OD [Concomitant]
     Indication: HYPERTENSION
     Route: 048
  7. MUCOSTA [Concomitant]
     Indication: GASTRIC ULCER
     Route: 048
  8. MOHRUS [Concomitant]
     Indication: BACK PAIN
     Route: 062
  9. LYRICA [Concomitant]
     Indication: NEUROPATHY PERIPHERAL
     Route: 048
     Dates: start: 20120604
  10. NEOPHAGEN C [Concomitant]
     Indication: DRUG-INDUCED LIVER INJURY
     Route: 048
  11. FOSAMAC [Concomitant]
     Indication: OSTEOPOROSIS
     Route: 048
  12. MAGNESIUM OXIDE [Concomitant]
     Indication: CONSTIPATION
     Route: 048

REACTIONS (3)
  - Erythema multiforme [Recovered/Resolved]
  - Urticaria [Recovered/Resolved]
  - Drug eruption [Recovered/Resolved]
